FAERS Safety Report 18349017 (Version 1)
Quarter: 2020Q4

REPORT INFORMATION
  Report Type: Spontaneous
  Country: SE (occurrence: SE)
  Receive Date: 20201006
  Receipt Date: 20201006
  Transmission Date: 20210114
  Serious: Yes (Hospitalization)
  Sender: FDA-Public Use
  Company Number: SE-COEPTIS PHARMACEUTICALS, INC.-COE-2020-000044

PATIENT
  Age: 68 Year
  Sex: Male

DRUGS (5)
  1. NORADRENALINE [Suspect]
     Active Substance: NOREPINEPHRINE
     Dosage: 0.1 MICROGRAM/KG/MIN
  2. NORADRENALINE [Suspect]
     Active Substance: NOREPINEPHRINE
     Dosage: 0.5 MICROGRAM/KG/MIN
  3. VASOPRESSIN. [Suspect]
     Active Substance: VASOPRESSIN
     Dosage: 0.03 U/MIN
  4. AMLODIPINE [Suspect]
     Active Substance: AMLODIPINE BESYLATE
  5. CRYSTALLOIDS [Suspect]
     Active Substance: UNSPECIFIED INGREDIENT

REACTIONS (5)
  - Non-cardiogenic pulmonary oedema [Recovered/Resolved]
  - Hyperdynamic left ventricle [Recovered/Resolved]
  - Intentional overdose [Recovered/Resolved]
  - Urine output decreased [Recovered/Resolved]
  - Mean arterial pressure decreased [Recovered/Resolved]
